FAERS Safety Report 7545329-3 (Version None)
Quarter: 2011Q2

REPORT INFORMATION
  Report Type: 
  Country: None (occurrence: None)
  Receive Date: 20110614
  Receipt Date: 20110602
  Transmission Date: 20111010
  Serious: Yes (Other)
  Sender: FDA-Public Use
  Company Number: GB-ELI_LILLY_AND_COMPANY-GB201106000560

PATIENT
  Sex: Male

DRUGS (1)
  1. ZYPREXA [Suspect]
     Dosage: UNK
     Dates: start: 20090101

REACTIONS (19)
  - SKIN DISCOLOURATION [None]
  - WEIGHT INCREASED [None]
  - RASH [None]
  - ARTHRITIS [None]
  - LOSS OF LIBIDO [None]
  - TEMPERATURE REGULATION DISORDER [None]
  - EYE PAIN [None]
  - EPISTAXIS [None]
  - SWELLING [None]
  - PLATELET DISORDER [None]
  - PULMONARY OEDEMA [None]
  - LIVER DISORDER [None]
  - RESPIRATORY DISORDER [None]
  - HEPATITIS C [None]
  - BONE MARROW DISORDER [None]
  - VASCULAR INJURY [None]
  - FLUID RETENTION [None]
  - LETHARGY [None]
  - DIZZINESS [None]
